FAERS Safety Report 6300383-1 (Version None)
Quarter: 2009Q3

REPORT INFORMATION
  Report Type: 
  Country: None (occurrence: None)
  Receive Date: 20090805
  Receipt Date: 20090720
  Transmission Date: 20100115
  Serious: Yes (Other)
  Sender: FDA-Public Use
  Company Number: ACO_00383_2007

PATIENT
  Sex: Female
  Weight: 72.5755 kg

DRUGS (12)
  1. ZANAFLEX [Suspect]
     Indication: FIBROMYALGIA
     Dosage: (4 MG Q3H ORAL)
     Route: 048
     Dates: end: 20070101
  2. ZANAFLEX [Suspect]
     Indication: PAIN
     Dosage: (4 MG Q3H ORAL)
     Route: 048
     Dates: end: 20070101
  3. ZANAFLEX [Suspect]
     Indication: FIBROMYALGIA
     Dosage: (8 MG Q3H ORAL)
     Dates: start: 20070101, end: 20070918
  4. ZANAFLEX [Suspect]
     Indication: PAIN
     Dosage: (8 MG Q3H ORAL)
     Dates: start: 20070101, end: 20070918
  5. ZANAFLEX [Suspect]
     Indication: FIBROMYALGIA
     Dosage: (DF ORAL)
     Route: 048
  6. ZANAFLEX [Suspect]
     Indication: PAIN
     Dosage: (DF ORAL)
     Route: 048
  7. KADIAN [Concomitant]
  8. GLIMEPIRIDE [Concomitant]
  9. ROXICODONE [Concomitant]
  10. ACIPHEX [Concomitant]
  11. REGLAN  /00041902/ [Concomitant]
  12. METFORMIN [Concomitant]

REACTIONS (6)
  - CHILLS [None]
  - DRUG WITHDRAWAL SYNDROME [None]
  - ERYTHEMA [None]
  - FEELING HOT [None]
  - HOT FLUSH [None]
  - TREMOR [None]
